FAERS Safety Report 25729904 (Version 5)
Quarter: 2025Q4

REPORT INFORMATION
  Report Type: Report from Study
  Country: AR (occurrence: AR)
  Receive Date: 20250827
  Receipt Date: 20251001
  Transmission Date: 20260117
  Serious: Yes (Hospitalization)
  Sender: ASTELLAS
  Company Number: AR-MONTEVERDE-AR-0643-20250807

PATIENT
  Age: 73 Year
  Sex: Male

DRUGS (3)
  1. ENFORTUMAB VEDOTIN-EJFV [Suspect]
     Active Substance: ENFORTUMAB VEDOTIN-EJFV
     Indication: Transitional cell carcinoma
     Dosage: 100 MG, EVERY 7 DAYS?POWDER FOR SOLUTION FOR INFUSION
     Route: 042
     Dates: start: 20250724
  2. ALERMINA [Concomitant]
     Indication: Product used for unknown indication
     Dosage: UNK
     Route: 048
  3. CLOBETASOL [Concomitant]
     Active Substance: CLOBETASOL
     Indication: Product used for unknown indication
     Route: 065

REACTIONS (6)
  - Pain in extremity [Unknown]
  - Erythema [Not Recovered/Not Resolved]
  - Blister [Recovered/Resolved]
  - Burning sensation [Not Recovered/Not Resolved]
  - Pain [Not Recovered/Not Resolved]
  - Incorrect route of product administration [Unknown]

NARRATIVE: CASE EVENT DATE: 20250731
